FAERS Safety Report 4854912-5 (Version None)
Quarter: 2005Q4

REPORT INFORMATION
  Report Type: 
  Country: None (occurrence: None)
  Receive Date: 20051213
  Receipt Date: 20051125
  Transmission Date: 20060501
  Serious: Yes (Hospitalization)
  Sender: FDA-Public Use
  Company Number: WAES 0510COL00001

PATIENT
  Age: 66 Year
  Sex: Male

DRUGS (7)
  1. COZAAR [Suspect]
     Indication: CARDIAC FAILURE CONGESTIVE
     Dosage: PO
     Route: 048
     Dates: start: 20030627, end: 20050930
  2. ASPIRIN [Concomitant]
  3. BETAHISTINE MALEATE [Concomitant]
  4. CARVEDILOL [Concomitant]
  5. FUROSEMIDE [Concomitant]
  6. LOVASTATIN [Concomitant]
  7. PENTOXIFYLLINE [Concomitant]

REACTIONS (7)
  - ASTHENIA [None]
  - ELECTROCARDIOGRAM ABNORMAL [None]
  - HYPOGLYCAEMIA [None]
  - INSULINOMA [None]
  - LOSS OF CONSCIOUSNESS [None]
  - SOMNOLENCE [None]
  - ULTRASOUND LIVER ABNORMAL [None]
